FAERS Safety Report 10015602 (Version 2)
Quarter: 2014Q2

REPORT INFORMATION
  Report Type: Spontaneous
  Country: US (occurrence: US)
  Receive Date: 20140317
  Receipt Date: 20140515
  Transmission Date: 20141212
  Serious: Yes (Hospitalization)
  Sender: FDA-Public Use
  Company Number: US-BAYER-2014-038943

PATIENT
  Age: 31 Year
  Sex: Female
  Weight: 70.75 kg

DRUGS (5)
  1. MIRENA [Suspect]
     Indication: CONTRACEPTION
     Dosage: 20 MCG/24HR, CONT
     Route: 015
     Dates: start: 20101208, end: 20130723
  2. TORADOL [Concomitant]
     Dosage: 60 MG, UNK
     Route: 030
     Dates: start: 20130619
  3. FLAGYL [Concomitant]
     Dosage: 500 MG, EVERY 12 HOURS FOR 7 DAYS
     Route: 048
     Dates: start: 20130619
  4. DOXYCYCLINE [Concomitant]
     Dosage: 100 MG,EVERY 12 HOURS FOR 7 DAYS
     Route: 048
     Dates: start: 20130619
  5. ULTRACET [Concomitant]
     Indication: PAIN
     Dosage: TAKE 1-2 EVERY 6 HOURS AS NEEDED
     Route: 048
     Dates: start: 20130619

REACTIONS (8)
  - Device dislocation [None]
  - Procedural pain [None]
  - Device issue [None]
  - Pelvic pain [None]
  - Abdominal pain [None]
  - Injury [None]
  - Emotional distress [None]
  - Medical device discomfort [None]
